FAERS Safety Report 23175166 (Version 2)
Quarter: 2024Q3

REPORT INFORMATION
  Report Type: Spontaneous
  Country: US (occurrence: US)
  Receive Date: 20231112
  Receipt Date: 20240731
  Transmission Date: 20241017
  Serious: No
  Sender: BRISTOL MYERS SQUIBB
  Company Number: US-BRISTOL-MYERS SQUIBB COMPANY-2023-160186

PATIENT
  Age: 67 Year
  Sex: Female

DRUGS (2)
  1. LENALIDOMIDE [Suspect]
     Active Substance: LENALIDOMIDE
     Indication: Plasma cell myeloma
     Dosage: TAKE 1 CAPSULE BY MOUTH DAILY. TAKE WHOLE WITH WATER, WITH OR WITHOUT FOOD AT APPROXIMATELY THE SAME
     Route: 048
     Dates: start: 20231024
  2. LENALIDOMIDE [Suspect]
     Active Substance: LENALIDOMIDE
     Dosage: TAKE 1 WHOLE CAPSULE DAILY DAYS 1- 21 OF A 28 DAY CYCLE W/ OR W/O FOOD AT THE SAME TIME DAILY
     Route: 048

REACTIONS (1)
  - Post procedural swelling [Not Recovered/Not Resolved]

NARRATIVE: CASE EVENT DATE: 20231001
